FAERS Safety Report 9454318 (Version 1)
Quarter: 2013Q3

REPORT INFORMATION
  Report Type: Spontaneous
  Country: US (occurrence: None)
  Receive Date: 20130809
  Receipt Date: 20130809
  Transmission Date: 20140515
  Serious: Yes (Other)
  Sender: FDA-Public Use
  Company Number: None

PATIENT
  Sex: Female

DRUGS (6)
  1. LEXAPRO 20MG - GENERIC [Suspect]
     Indication: MAJOR DEPRESSION
     Dates: start: 201010
  2. COPAXONE [Concomitant]
  3. BADOFU [Concomitant]
  4. GLUCOSAMINE [Concomitant]
  5. VIT D [Concomitant]
  6. PERCOET [Concomitant]

REACTIONS (5)
  - Abdominal discomfort [None]
  - Nausea [None]
  - Vomiting [None]
  - Chills [None]
  - Tremor [None]
